FAERS Safety Report 19835776 (Version 1)
Quarter: 2021Q3

REPORT INFORMATION
  Report Type: Spontaneous
  Country: NP (occurrence: NP)
  Receive Date: 20210916
  Receipt Date: 20210916
  Transmission Date: 20211014
  Serious: Yes (Death, Other)
  Sender: FDA-Public Use
  Company Number: NP-INGENUS PHARMACEUTICALS, LLC-2021INF000123

PATIENT
  Age: 39 Year
  Sex: Female

DRUGS (3)
  1. METHYLPREDNISOLONE. [Suspect]
     Active Substance: METHYLPREDNISOLONE
     Indication: NEPHROTIC SYNDROME
     Dosage: UNK
     Route: 065
  2. CYCLOPHOSPHAMIDE. [Suspect]
     Active Substance: CYCLOPHOSPHAMIDE
     Indication: NEPHROTIC SYNDROME
     Dosage: UNK
     Route: 065
  3. CYCLOPHOSPHAMIDE. [Suspect]
     Active Substance: CYCLOPHOSPHAMIDE
     Indication: ACUTE KIDNEY INJURY

REACTIONS (4)
  - Blood creatinine increased [Fatal]
  - Gastrointestinal mucormycosis [Fatal]
  - Metabolic acidosis [Fatal]
  - Blood pressure decreased [Fatal]
